FAERS Safety Report 24977379 (Version 2)
Quarter: 2025Q2

REPORT INFORMATION
  Report Type: Report from Study
  Country: CA (occurrence: CA)
  Receive Date: 20250217
  Receipt Date: 20250612
  Transmission Date: 20250717
  Serious: Yes (Death)
  Sender: AMGEN
  Company Number: CA-AMGEN-CANSP2025029689

PATIENT
  Age: 67 Year
  Sex: Female

DRUGS (1)
  1. REPATHA [Suspect]
     Active Substance: EVOLOCUMAB
     Indication: Product used for unknown indication
     Dosage: 140 MILLIGRAM PER MILLILITRE, Q2WK
     Route: 065
     Dates: start: 20160421, end: 20250210

REACTIONS (1)
  - Death [Fatal]

NARRATIVE: CASE EVENT DATE: 20250210
